FAERS Safety Report 7424071-3 (Version None)
Quarter: 2011Q2

REPORT INFORMATION
  Report Type: 
  Country: None (occurrence: None)
  Receive Date: 20110419
  Receipt Date: 20110418
  Transmission Date: 20111010
  Serious: Yes (Other)
  Sender: FDA-Public Use
  Company Number: DE-ABBOTT-11P-062-0706561-00

PATIENT
  Sex: Female
  Weight: 76 kg

DRUGS (4)
  1. EXENATID [Concomitant]
     Indication: DIABETES MELLITUS
  2. CORTISONE [Concomitant]
     Indication: RHEUMATOID ARTHRITIS
  3. HUMIRA [Suspect]
     Indication: RHEUMATOID ARTHRITIS
     Route: 058
     Dates: start: 20101015, end: 20110208
  4. METHOTREXAT [Concomitant]
     Indication: RHEUMATOID ARTHRITIS

REACTIONS (1)
  - DEVICE FAILURE [None]
